FAERS Safety Report 10007524 (Version 2)
Quarter: 2014Q2

REPORT INFORMATION
  Report Type: Report from Study
  Country: IL (occurrence: IL)
  Receive Date: 20140313
  Receipt Date: 20140516
  Transmission Date: 20141212
  Serious: Yes (Other)
  Sender: FDA-Public Use
  Company Number: PHHY2014IL030106

PATIENT
  Sex: Female

DRUGS (2)
  1. GILENYA [Suspect]
     Indication: MULTIPLE SCLEROSIS
     Dosage: 0.5 MG, QD
     Route: 048
     Dates: start: 20111005
  2. GILENYA [Suspect]
     Dosage: 0.5 MG, QOD
     Route: 048

REACTIONS (2)
  - Benign breast neoplasm [Not Recovered/Not Resolved]
  - Prescribed underdose [Unknown]
